FAERS Safety Report 12254479 (Version 1)
Quarter: 2016Q2

REPORT INFORMATION
  Report Type: Spontaneous
  Country: CA (occurrence: CA)
  Receive Date: 20160411
  Receipt Date: 20160411
  Transmission Date: 20160815
  Serious: Yes (Other)
  Sender: FDA-Public Use
  Company Number: CA-PFIZER INC-2016200130

PATIENT
  Age: 49 Year
  Sex: Female

DRUGS (1)
  1. MIN-OVRAL-21 [Suspect]
     Active Substance: ETHINYL ESTRADIOL\LEVONORGESTREL

REACTIONS (3)
  - Hepatic neoplasm [Not Recovered/Not Resolved]
  - Breast mass [Recovered/Resolved]
  - Cervix neoplasm [Not Recovered/Not Resolved]
